FAERS Safety Report 9083763 (Version 3)
Quarter: 2013Q4

REPORT INFORMATION
  Report Type: Spontaneous
  Country: US (occurrence: US)
  Receive Date: 20130130
  Receipt Date: 20131226
  Transmission Date: 20140711
  Serious: No
  Sender: FDA-Public Use
  Company Number: US-009507513-1301USA011972

PATIENT
  Age: 61 Year
  Sex: Male

DRUGS (2)
  1. PROVENTIL [Suspect]
     Indication: ASTHMA
     Dosage: ONE PUFF THREE TO FOUR TIMES DAILY
     Route: 055
  2. PROVENTIL [Suspect]
     Dosage: 2 PUFFS EVERY 4 HRS AS NEEDED
     Route: 055

REACTIONS (5)
  - Drug dose omission [Unknown]
  - Product quality issue [Unknown]
  - Drug dose omission [Unknown]
  - Product quality issue [Unknown]
  - No adverse event [Unknown]
